FAERS Safety Report 17071972 (Version 1)
Quarter: 2019Q4

REPORT INFORMATION
  Report Type: Spontaneous
  Country: US (occurrence: US)
  Receive Date: 20191125
  Receipt Date: 20191125
  Transmission Date: 20200122
  Serious: Yes (Other)
  Sender: FDA-Public Use
  Company Number: US-COVIS PHARMA B.V.-2019COV00287

PATIENT
  Sex: Male
  Weight: 108.84 kg

DRUGS (31)
  1. TOUJEO [Concomitant]
     Active Substance: INSULIN GLARGINE
     Dosage: 79 AT NIGHT
     Route: 058
  2. MONTELUKAST [Concomitant]
     Active Substance: MONTELUKAST SODIUM
     Dosage: 10 MG, 1X/DAY AT BEDTIME
     Route: 048
  3. OMEPRAZOLE MAGNESIUM. [Suspect]
     Active Substance: OMEPRAZOLE MAGNESIUM
     Indication: ANTACID THERAPY
  4. METOPROLOL TARTRATE. [Suspect]
     Active Substance: METOPROLOL TARTRATE
     Indication: BLOOD PRESSURE ABNORMAL
     Dosage: 25 MG, 2X/DAY
     Route: 048
  5. TOLTERODINE [Concomitant]
     Active Substance: TOLTERODINE
     Dosage: 2 MG, 2X/DAY
     Route: 048
  6. ASPIRIN. [Concomitant]
     Active Substance: ASPIRIN
     Dosage: 81 MG, 1X/DAY
     Route: 048
  7. XYLENOL [Concomitant]
     Dosage: 5 MG, 1X/DAY
     Route: 048
  8. UNSPECIFIED HIGH CHOLESTEROL PRODUCT (STATIN) [Concomitant]
     Dosage: UNK
     Dates: start: 2013
  9. UNSPECIFIED BLOOD PRESSURE PRODUCT [Concomitant]
  10. AMLODIPINE [Concomitant]
     Active Substance: AMLODIPINE BESYLATE
     Dosage: 5 MG, 1X/DAY
     Route: 048
  11. FISH OIL [Concomitant]
     Active Substance: FISH OIL
     Dosage: 1000 MG, 2X/DAY
     Route: 048
  12. IPRATROPIUM [Concomitant]
     Active Substance: IPRATROPIUM
     Dosage: 2  PUFFS UP TO TOTAL OF 3 TIMES/DAY
     Route: 045
  13. VITAMIN D [Concomitant]
     Active Substance: VITAMIN D NOS
     Dosage: 2000 MG, 1X/DAY
     Route: 048
  14. BYDUREON [Suspect]
     Active Substance: EXENATIDE
     Indication: TYPE 2 DIABETES MELLITUS
     Dosage: 2 MG, 1X/WEEK
     Route: 058
  15. HUMALOG [Concomitant]
     Active Substance: INSULIN LISPRO
     Dosage: 6 UNITS BEFORE MEAL
     Route: 058
  16. FLUTICASONE. [Concomitant]
     Active Substance: FLUTICASONE
     Dosage: 50 ?G, 2X/DAY
     Route: 045
  17. SPIRONOLACTONE. [Concomitant]
     Active Substance: SPIRONOLACTONE
     Dosage: 25 MG, 1X/DAY
     Route: 048
  18. ESTER-C [Concomitant]
     Dosage: 500 MG, 2X/DAY
     Route: 048
  19. OMEPRAZOLE OTC [Suspect]
     Active Substance: OMEPRAZOLE
     Indication: GASTROOESOPHAGEAL REFLUX DISEASE
  20. SYMBICORT [Suspect]
     Active Substance: BUDESONIDE\FORMOTEROL FUMARATE DIHYDRATE
     Indication: ASTHMA
  21. OMEPRAZOLE MAGNESIUM. [Suspect]
     Active Substance: OMEPRAZOLE MAGNESIUM
     Indication: GASTROOESOPHAGEAL REFLUX DISEASE
     Dosage: UNK, 1X/DAY
     Route: 048
  22. HUMALOG [Concomitant]
     Active Substance: INSULIN LISPRO
     Dosage: 10 UNITS BEFORE MEAL
     Route: 058
  23. TAMSULOSIN [Concomitant]
     Active Substance: TAMSULOSIN
     Dosage: 4 UNK, 1X/DAY
     Route: 048
  24. MULTIVITAMINS [Concomitant]
     Active Substance: VITAMINS
     Dosage: UNK, 1X/DAY
     Route: 048
  25. OMEPRAZOLE OTC [Suspect]
     Active Substance: OMEPRAZOLE
     Indication: ANTACID THERAPY
     Dosage: UNK, 1X/DAY
     Route: 048
  26. LISINOPRIL. [Suspect]
     Active Substance: LISINOPRIL
     Indication: BLOOD PRESSURE ABNORMAL
     Route: 048
  27. METFORMIN [Concomitant]
     Active Substance: METFORMIN HYDROCHLORIDE
     Dosage: 1000 MG, 2X/DAY
     Route: 048
  28. IPRATROPIUM [Concomitant]
     Active Substance: IPRATROPIUM
     Dosage: 2 PUFFS, IN THE MORNING
     Route: 045
  29. TURMERIC [Concomitant]
     Active Substance: HERBALS\TURMERIC
     Dosage: 2, 2X/DAY
     Route: 048
  30. SYMBICORT [Suspect]
     Active Substance: BUDESONIDE\FORMOTEROL FUMARATE DIHYDRATE
     Indication: CHRONIC OBSTRUCTIVE PULMONARY DISEASE
     Dosage: 80 ?G, 2X/DAY
     Route: 055
  31. ROSUVASTATIN. [Suspect]
     Active Substance: ROSUVASTATIN
     Indication: BLOOD CHOLESTEROL INCREASED
     Dosage: 5 MG, 1X/DAY
     Route: 048

REACTIONS (10)
  - Vitamin D decreased [Unknown]
  - Chronic obstructive pulmonary disease [Not Recovered/Not Resolved]
  - Blood cholesterol increased [Unknown]
  - Rash [Unknown]
  - Injection site scar [Not Recovered/Not Resolved]
  - Asthma [Not Recovered/Not Resolved]
  - Injury associated with device [Unknown]
  - Blood pressure increased [Unknown]
  - Type 2 diabetes mellitus [Not Recovered/Not Resolved]
  - Rhinorrhoea [Unknown]
